FAERS Safety Report 11498355 (Version 1)
Quarter: 2015Q3

REPORT INFORMATION
  Report Type: Spontaneous
  Country: US (occurrence: US)
  Receive Date: 20150911
  Receipt Date: 20150911
  Transmission Date: 20151125
  Serious: Yes (Hospitalization, Other)
  Sender: FDA-Public Use
  Company Number: US-DSJP-DSU-2015-118045

PATIENT

DRUGS (2)
  1. BENICAR HCT [Suspect]
     Active Substance: HYDROCHLOROTHIAZIDE\OLMESARTAN MEDOXOMIL
     Indication: HYPERTENSION
     Dosage: 20/12.5 MG, QD
     Dates: start: 20120119, end: 20130502
  2. BENICAR [Suspect]
     Active Substance: OLMESARTAN MEDOXOMIL
     Indication: HYPERTENSION
     Dosage: UNK

REACTIONS (14)
  - Enteritis [Unknown]
  - Acute kidney injury [Unknown]
  - Intestinal villi atrophy [Unknown]
  - Hiatus hernia [Unknown]
  - Duodenitis [Unknown]
  - Oesophageal motility disorder [Unknown]
  - Malabsorption [Unknown]
  - Enteritis [Unknown]
  - Haemorrhoids [Unknown]
  - Gastrointestinal haemorrhage [Unknown]
  - Lactose intolerance [Unknown]
  - Hypokalaemia [Unknown]
  - Hyponatraemia [Unknown]
  - Gastrointestinal mucosal disorder [Unknown]

NARRATIVE: CASE EVENT DATE: 20130207
